FAERS Safety Report 5732401-3 (Version None)
Quarter: 2008Q2

REPORT INFORMATION
  Report Type: 
  Country: None (occurrence: None)
  Receive Date: 20080508
  Receipt Date: 20080426
  Transmission Date: 20081010
  Serious: Yes (Other)
  Sender: FDA-Public Use
  Company Number: US-PFIZER INC-2008038413

PATIENT
  Sex: Female
  Weight: 76.2 kg

DRUGS (1)
  1. CHANTIX [Suspect]
     Indication: SMOKING CESSATION THERAPY

REACTIONS (2)
  - BLOOD UREA NITROGEN/CREATININE RATIO INCREASED [None]
  - WEIGHT INCREASED [None]
